FAERS Safety Report 5032944-4 (Version None)
Quarter: 2006Q2

REPORT INFORMATION
  Report Type: 
  Country: None (occurrence: None)
  Receive Date: 20060620
  Receipt Date: 20060615
  Transmission Date: 20061013
  Serious: Yes (Other)
  Sender: FDA-Public Use
  Company Number: US-2005-020717

PATIENT
  Age: 51 Year
  Sex: Female
  Weight: 61.2 kg

DRUGS (9)
  1. CLIMARA [Suspect]
     Indication: HORMONE REPLACEMENT THERAPY
     Dosage: 0.5 MG/D, CONT, TRANSDERMAL
     Route: 062
     Dates: start: 19950101, end: 19980101
  2. CLIMARA [Suspect]
     Indication: MENOPAUSAL SYMPTOMS
     Dosage: 0.5 MG/D, CONT, TRANSDERMAL
     Route: 062
     Dates: start: 19950101, end: 19980101
  3. PREMARIN [Suspect]
     Indication: HORMONE REPLACEMENT THERAPY
     Dates: start: 19930101, end: 19980101
  4. PREMARIN [Suspect]
     Indication: MENOPAUSAL SYMPTOMS
     Dates: start: 19930101, end: 19980101
  5. ESTRATAB [Suspect]
     Indication: HORMONE REPLACEMENT THERAPY
     Dates: start: 19930101, end: 19980101
  6. ESTRATAB [Suspect]
     Indication: MENOPAUSAL SYMPTOMS
     Dates: start: 19930101, end: 19980101
  7. PROVERA [Suspect]
     Indication: HORMONE REPLACEMENT THERAPY
     Dates: start: 19930101, end: 19980101
  8. PROVERA [Suspect]
     Indication: MENOPAUSAL SYMPTOMS
     Dates: start: 19930101, end: 19980101
  9. MEDROXYPROGESTERONE ACETATE [Suspect]
     Indication: MENOPAUSAL SYMPTOMS
     Dates: start: 19930101, end: 19980101

REACTIONS (12)
  - ANXIETY [None]
  - BREAST CANCER IN SITU [None]
  - BREAST CANCER STAGE I [None]
  - BREAST MICROCALCIFICATION [None]
  - DEFORMITY [None]
  - DEPRESSION [None]
  - HYSTERECTOMY [None]
  - OESTROGEN RECEPTOR ASSAY POSITIVE [None]
  - PAIN [None]
  - POLYTRAUMATISM [None]
  - PROGESTERONE RECEPTOR ASSAY POSITIVE [None]
  - SALPINGO-OOPHORECTOMY [None]
